FAERS Safety Report 9303333 (Version 1)
Quarter: 2013Q1

REPORT INFORMATION
  Report Type: Spontaneous
  Country: US (occurrence: None)
  Receive Date: 20121220
  Receipt Date: 20121220
  Transmission Date: 20140127
  Serious: Yes (Other)
  Sender: FDA-Public Use
  Company Number: 2010-375

PATIENT
  Age: 46 Year
  Sex: Male

DRUGS (4)
  1. PRIALT (ZICONOTIDE) INTRATHECAL INFUSION [Suspect]
     Dosage: ONCE/HOUR
     Route: 037
     Dates: end: 20100901
  2. FENTANYL (FENTANYL) INJECTION [Suspect]
     Dosage: ONCE/HOUR
     Route: 037
  3. CLONIDINE (CLONIDINE) [Suspect]
     Dosage: ONCE/HOUR
     Route: 037
  4. BUPIVACAINE (BUPIVACAINE) INJECTION [Suspect]
     Dosage: ONCE/HOUR
     Route: 037

REACTIONS (2)
  - Pancreatitis chronic [None]
  - Condition aggravated [None]
